FAERS Safety Report 14966469 (Version 1)
Quarter: 2018Q2

REPORT INFORMATION
  Report Type: Report from Study
  Country: None (occurrence: US)
  Receive Date: 20180604
  Receipt Date: 20180604
  Transmission Date: 20180711
  Serious: Yes (Other)
  Sender: FDA-Public Use
  Company Number: US-ABBVIE-18K-163-2350858-00

PATIENT
  Sex: Female

DRUGS (1)
  1. HUMIRA [Suspect]
     Active Substance: ADALIMUMAB
     Indication: COLITIS ULCERATIVE
     Route: 058
     Dates: start: 2013, end: 2018

REACTIONS (6)
  - Vulvovaginal inflammation [Recovering/Resolving]
  - Depression [Recovering/Resolving]
  - Vaginal haemorrhage [Recovering/Resolving]
  - Medical procedure [Unknown]
  - Nasopharyngitis [Unknown]
  - Vaginal stricture [Recovering/Resolving]

NARRATIVE: CASE EVENT DATE: 2018
